FAERS Safety Report 9252956 (Version 1)
Quarter: 2013Q2

REPORT INFORMATION
  Report Type: Spontaneous
  Country: DE (occurrence: CA)
  Receive Date: 20130424
  Receipt Date: 20130424
  Transmission Date: 20140414
  Serious: Yes (Hospitalization)
  Sender: FDA-Public Use
  Company Number: CA-FRI-1000044578

PATIENT
  Age: 78 Year
  Sex: Male

DRUGS (1)
  1. ROFLUMILAST [Suspect]
     Dosage: 1 DF
     Route: 048
     Dates: start: 20121021, end: 20121229

REACTIONS (2)
  - Pneumonia [Unknown]
  - Asthenia [Unknown]
